FAERS Safety Report 4645325-X (Version None)
Quarter: 2005Q2

REPORT INFORMATION
  Report Type: 
  Country: None (occurrence: None)
  Receive Date: 20050331
  Receipt Date: 20041214
  Transmission Date: 20051028
  Serious: No
  Sender: FDA-Public Use
  Company Number: 04P-163-0283198-00

PATIENT
  Sex: Female

DRUGS (8)
  1. HUMIRA [Suspect]
     Indication: RHEUMATOID ARTHRITIS
     Dosage: 40 MG, 1 IN 2 WK, SUBCUTANEOUS
     Route: 058
     Dates: start: 20040301
  2. METHOTREXATE [Concomitant]
  3. BUSPIRONE HCL [Concomitant]
  4. ALPRAZOLAM [Concomitant]
  5. BUPROPION HYDROCHLORIDE [Concomitant]
  6. SALMETEROL XINAFOATE [Concomitant]
  7. BUDESONIDE [Concomitant]
  8. VITAMINS [Concomitant]

REACTIONS (3)
  - HEADACHE [None]
  - INJECTION SITE HAEMORRHAGE [None]
  - INJECTION SITE SWELLING [None]
